FAERS Safety Report 12056904 (Version 3)
Quarter: 2016Q1

REPORT INFORMATION
  Report Type: Spontaneous
  Country: US (occurrence: US)
  Receive Date: 20160209
  Receipt Date: 20160316
  Transmission Date: 20160526
  Serious: Yes (Death, Other)
  Sender: FDA-Public Use
  Company Number: US-BAYER-2016-024910

PATIENT
  Age: 38 Year
  Sex: Male
  Weight: 91.2 kg

DRUGS (9)
  1. PREGABALIN. [Concomitant]
     Active Substance: PREGABALIN
     Indication: COMPLETED SUICIDE
  2. NAPROXEN SODIUM ({= 220 MG) [Suspect]
     Active Substance: NAPROXEN SODIUM
  3. LORAZEPAM. [Concomitant]
     Active Substance: LORAZEPAM
     Indication: COMPLETED SUICIDE
  4. OMEPRAZOLE. [Concomitant]
     Active Substance: OMEPRAZOLE
     Indication: COMPLETED SUICIDE
  5. VERAPAMIL [Suspect]
     Active Substance: VERAPAMIL HYDROCHLORIDE
     Indication: COMPLETED SUICIDE
     Dosage: 80 MG, TID
  6. TADALAFIL [Concomitant]
     Active Substance: TADALAFIL
     Indication: COMPLETED SUICIDE
  7. DICLOFENAC [Suspect]
     Active Substance: DICLOFENAC
     Indication: COMPLETED SUICIDE
  8. PROPRANOLOL HYDROCHLORIDE. [Concomitant]
     Active Substance: PROPRANOLOL HYDROCHLORIDE
     Indication: COMPLETED SUICIDE
  9. DULOXETINE. [Concomitant]
     Active Substance: DULOXETINE
     Indication: COMPLETED SUICIDE

REACTIONS (4)
  - Toxicity to various agents [Fatal]
  - Completed suicide [Fatal]
  - Intentional overdose [Fatal]
  - Unresponsive to stimuli [Fatal]
